FAERS Safety Report 6902422-3 (Version None)
Quarter: 2010Q3

REPORT INFORMATION
  Report Type: 
  Country: None (occurrence: None)
  Receive Date: 20100802
  Receipt Date: 20100802
  Transmission Date: 20110219
  Serious: Yes (Hospitalization)
  Sender: FDA-Public Use
  Company Number: None

PATIENT
  Age: 78 Year
  Sex: Male
  Weight: 76.2 kg

DRUGS (1)
  1. MORPHINE [Suspect]
     Dosage: 2.5 MG PO
     Route: 048
     Dates: start: 20100603, end: 20100607

REACTIONS (2)
  - MENTAL STATUS CHANGES [None]
  - SEDATION [None]
